FAERS Safety Report 10363943 (Version 1)
Quarter: 2014Q3

REPORT INFORMATION
  Report Type: Spontaneous
  Country: CA (occurrence: None)
  Receive Date: 20140801
  Receipt Date: 20140801
  Transmission Date: 20150326
  Serious: Yes (Hospitalization)
  Sender: FDA-Public Use
  Company Number: CA-AIKEM-000673

PATIENT
  Age: 54 Year
  Sex: Female

DRUGS (1)
  1. CEPHALEXIN. [Suspect]
     Active Substance: CEPHALEXIN
     Indication: PSORIASIS
     Dosage: 500 MG ,  4 / TIMES PER 1.0 DAYS
     Route: 048

REACTIONS (5)
  - Psoriasis [None]
  - Acute generalised exanthematous pustulosis [None]
  - Oropharyngeal pain [None]
  - Toxic epidermal necrolysis [None]
  - Drug interaction [None]
